FAERS Safety Report 4445948-7 (Version None)
Quarter: 2004Q3

REPORT INFORMATION
  Report Type: 
  Country: None (occurrence: None)
  Receive Date: 20040903
  Receipt Date: 20040819
  Transmission Date: 20050211
  Serious: Yes (Death, Hospitalization)
  Sender: FDA-Public Use
  Company Number: 04P-163-0268413-00

PATIENT
  Age: 69 Year
  Sex: Male

DRUGS (2)
  1. HUMIRA [Suspect]
  2. METHOTREXATE [Concomitant]

REACTIONS (4)
  - COUGH [None]
  - DYSPNOEA [None]
  - FIBROSIS [None]
  - HYPOXIA [None]
